FAERS Safety Report 6525679-X (Version None)
Quarter: 2010Q1

REPORT INFORMATION
  Report Type: 
  Country: None (occurrence: None)
  Receive Date: 20100104
  Receipt Date: 20091221
  Transmission Date: 20100710
  Serious: No
  Sender: FDA-Public Use
  Company Number: US-B.I. PHARMACEUTICALS,INC./RIDGEFIELD-2009-BP-14731BP

PATIENT
  Sex: Female

DRUGS (4)
  1. SPIRIVA [Suspect]
     Indication: CHRONIC OBSTRUCTIVE PULMONARY DISEASE
     Dosage: 18 MCG
     Route: 055
     Dates: start: 20040101
  2. CAPTOPRIL [Concomitant]
     Indication: VENTRICULAR EXTRASYSTOLES
  3. DILTIAZEM [Concomitant]
     Indication: VENTRICULAR EXTRASYSTOLES
  4. COUMADIN [Concomitant]
     Indication: ATRIAL FIBRILLATION

REACTIONS (2)
  - DYSPHONIA [None]
  - SOMNOLENCE [None]
